FAERS Safety Report 24050644 (Version 2)
Quarter: 2024Q3

REPORT INFORMATION
  Report Type: Spontaneous
  Country: US (occurrence: US)
  Receive Date: 20240704
  Receipt Date: 20240715
  Transmission Date: 20241016
  Serious: Yes (Death, Hospitalization)
  Sender: Unknown Manufacturer
  Company Number: US-MELINTA THERAPEUTICS, LLC-US-MLNT-24-00325

PATIENT

DRUGS (3)
  1. MINOCIN [Suspect]
     Active Substance: MINOCYCLINE HYDROCHLORIDE
     Indication: Intervertebral discitis
     Dosage: 200 MILLIGRAM, BID
     Route: 048
     Dates: start: 20230912, end: 20230919
  2. CEFEPIME [Suspect]
     Active Substance: CEFEPIME HYDROCHLORIDE
     Indication: Intervertebral discitis
     Dosage: 2 GRAM, Q8H
     Route: 042
     Dates: start: 20230901, end: 20230919
  3. VANCOMYCIN [Suspect]
     Active Substance: VANCOMYCIN
     Indication: Osteomyelitis
     Dosage: 1.5 GRAM, QD
     Route: 042
     Dates: start: 20230901, end: 20230919

REACTIONS (6)
  - Polyarteritis nodosa [Not Recovered/Not Resolved]
  - Chronic myelomonocytic leukaemia [Fatal]
  - Anaemia [Not Recovered/Not Resolved]
  - Thrombocytopenia [None]
  - Subcapsular renal haematoma [Not Recovered/Not Resolved]
  - Off label use [Unknown]
